FAERS Safety Report 18303131 (Version 2)
Quarter: 2020Q4

REPORT INFORMATION
  Report Type: Spontaneous
  Country: ES (occurrence: ES)
  Receive Date: 20200924
  Receipt Date: 20201203
  Transmission Date: 20210113
  Serious: Yes (Other)
  Sender: FDA-Public Use
  Company Number: ES-BIOGEN-2020BI00926587

PATIENT
  Sex: Female

DRUGS (1)
  1. TYSABRI [Suspect]
     Active Substance: NATALIZUMAB
     Indication: MULTIPLE SCLEROSIS
     Route: 065

REACTIONS (4)
  - COVID-19 [Unknown]
  - Maternal exposure during pregnancy [Recovered/Resolved]
  - Pre-eclampsia [Unknown]
  - Prescribed underdose [Unknown]
